FAERS Safety Report 21028944 (Version 3)
Quarter: 2022Q3

REPORT INFORMATION
  Report Type: Spontaneous
  Country: US (occurrence: US)
  Receive Date: 20220630
  Receipt Date: 20220923
  Transmission Date: 20221027
  Serious: Yes (Life-Threatening, Hospitalization, Other)
  Sender: FDA-Public Use
  Company Number: US-MLMSERVICE-20220621-3619021-1

PATIENT
  Sex: Female
  Weight: 2 kg

DRUGS (7)
  1. LIDOCAINE [Suspect]
     Active Substance: LIDOCAINE
     Indication: Maternal exposure during pregnancy
     Dosage: 100 MG
     Route: 064
  2. PROPOFOL [Suspect]
     Active Substance: PROPOFOL
     Indication: Maternal exposure during pregnancy
     Dosage: 150 MG,INFUSION
     Route: 064
  3. PROPOFOL [Suspect]
     Active Substance: PROPOFOL
     Dosage: UNK
     Route: 064
  4. FENTANYL [Suspect]
     Active Substance: FENTANYL
     Indication: Maternal exposure during pregnancy
     Dosage: 100 UG
     Route: 064
  5. REMIFENTANIL [Suspect]
     Active Substance: REMIFENTANIL
     Indication: Maternal exposure during pregnancy
     Dosage: UNK
     Route: 064
  6. NOREPINEPHRINE [Concomitant]
     Active Substance: NOREPINEPHRINE
     Indication: Maternal exposure during pregnancy
     Dosage: UNK
     Route: 064
  7. SUCCINYLCHOLINE [Concomitant]
     Active Substance: SUCCINYLCHOLINE
     Indication: Maternal exposure during pregnancy
     Dosage: 100 MG
     Route: 064

REACTIONS (4)
  - Myocardial depression [Recovered/Resolved]
  - Respiratory depression [Recovered/Resolved]
  - Apnoeic attack [Recovered/Resolved]
  - Foetal exposure during pregnancy [Unknown]
